FAERS Safety Report 23170788 (Version 1)
Quarter: 2023Q4

REPORT INFORMATION
  Report Type: Report from Study
  Country: US (occurrence: None)
  Receive Date: 20231110
  Receipt Date: 20231110
  Transmission Date: 20240109
  Serious: Yes (Other)
  Sender: FDA-Public Use
  Company Number: 2023A255295

PATIENT
  Sex: Female

DRUGS (1)
  1. SAPHNELO [Suspect]
     Active Substance: ANIFROLUMAB-FNIA
     Indication: Lupus cystitis
     Route: 042
     Dates: start: 20230703

REACTIONS (2)
  - Systemic lupus erythematosus [Recovering/Resolving]
  - Drug ineffective [Unknown]
